FAERS Safety Report 8498023-9 (Version None)
Quarter: 2012Q3

REPORT INFORMATION
  Report Type: 
  Country: None (occurrence: None)
  Receive Date: 20120709
  Receipt Date: 20120618
  Transmission Date: 20120928
  Serious: No
  Sender: FDA-Public Use
  Company Number: US-AMGEN-USASP2012037730

PATIENT
  Age: 17 Year
  Sex: Female

DRUGS (1)
  1. ENBREL [Suspect]
     Indication: RHEUMATOID ARTHRITIS
     Dosage: 25 MG, 2 TIMES/WK
     Dates: start: 20120220

REACTIONS (6)
  - ASTHENIA [None]
  - KIDNEY INFECTION [None]
  - BACK PAIN [None]
  - URINARY TRACT INFECTION [None]
  - MOOD ALTERED [None]
  - FATIGUE [None]
